FAERS Safety Report 11469370 (Version 2)
Quarter: 2015Q4

REPORT INFORMATION
  Report Type: Spontaneous
  Country: US (occurrence: US)
  Receive Date: 20150908
  Receipt Date: 20151012
  Transmission Date: 20160304
  Serious: No
  Sender: FDA-Public Use
  Company Number: US-GLAXOSMITHKLINE-US2015124848

PATIENT
  Sex: Male

DRUGS (10)
  1. FLOVENT DISKUS [Suspect]
     Active Substance: FLUTICASONE PROPIONATE
     Indication: BRONCHITIS CHRONIC
     Dosage: 250 MCG
     Route: 055
     Dates: start: 2014
  2. VENTOLIN HFA [Suspect]
     Active Substance: ALBUTEROL SULFATE
     Indication: COUGH
     Dosage: UNK
     Route: 065
     Dates: start: 201508
  3. AUGMENTIN [Concomitant]
     Active Substance: AMOXICILLIN\CLAVULANATE POTASSIUM
  4. MUCINEX [Concomitant]
     Active Substance: GUAIFENESIN
  5. ALBUTEROL. [Concomitant]
     Active Substance: ALBUTEROL
  6. VENTOLIN HFA [Suspect]
     Active Substance: ALBUTEROL SULFATE
     Indication: DYSPNOEA
  7. ZYRTEC [Concomitant]
     Active Substance: CETIRIZINE HYDROCHLORIDE
  8. FLOVENT DISKUS [Suspect]
     Active Substance: FLUTICASONE PROPIONATE
     Dosage: 500 MCG
     Route: 055
  9. ADVAIR DISKUS [Suspect]
     Active Substance: FLUTICASONE PROPIONATE\SALMETEROL XINAFOATE
     Indication: BRONCHITIS CHRONIC
     Dosage: 1 PUFF(S), BID
     Route: 055
  10. ADVAIR HFA [Suspect]
     Active Substance: FLUTICASONE PROPIONATE\SALMETEROL XINAFOATE
     Indication: BRONCHITIS CHRONIC
     Dosage: 2 PUFF(S), BID
     Route: 055

REACTIONS (15)
  - Weight increased [Unknown]
  - Dysphonia [Recovered/Resolved]
  - Device use error [Unknown]
  - Retching [Recovered/Resolved]
  - Sleep apnoea syndrome [Unknown]
  - Gait disturbance [Not Recovered/Not Resolved]
  - Drug ineffective [Unknown]
  - Cough [Unknown]
  - Asthenia [Not Recovered/Not Resolved]
  - Musculoskeletal chest pain [Unknown]
  - Dyspnoea [Not Recovered/Not Resolved]
  - Respiratory symptom [Unknown]
  - Decreased immune responsiveness [Not Recovered/Not Resolved]
  - Productive cough [Not Recovered/Not Resolved]
  - Hypersensitivity [Unknown]
